FAERS Safety Report 8478384-7 (Version None)
Quarter: 2012Q2

REPORT INFORMATION
  Report Type: 
  Country: None (occurrence: None)
  Receive Date: 20120629
  Receipt Date: 20120619
  Transmission Date: 20120825
  Serious: Yes (Hospitalization)
  Sender: FDA-Public Use
  Company Number: US-ABBOTT-12P-163-0948235-00

PATIENT
  Age: 45 Year
  Sex: Female

DRUGS (14)
  1. HYDROCODONE BITARTRATE [Concomitant]
     Indication: PAIN
     Dosage: 500/325 MG AS NEEDED
  2. HYDROCHLOROTHIAZIDE [Concomitant]
     Indication: PRODUCT USED FOR UNKNOWN INDICATION
  3. LISINOPRIL [Concomitant]
     Indication: PRODUCT USED FOR UNKNOWN INDICATION
  4. IBUPROFEN [Concomitant]
     Indication: PAIN
  5. VANCOMYCIN [Suspect]
     Indication: ABSCESS
     Route: 042
  6. AMLODIPINE [Concomitant]
     Indication: HYPERTENSION
  7. SEROQUEL [Concomitant]
     Indication: BIPOLAR DISORDER
  8. TRAMADOL HCL [Concomitant]
     Indication: PAIN
     Dosage: ONCE, AS NEEDED
  9. HUMIRA [Suspect]
     Indication: RHEUMATOID ARTHRITIS
  10. PREDNISONE [Concomitant]
     Indication: PRODUCT USED FOR UNKNOWN INDICATION
  11. ACETAMINOPHEN [Concomitant]
     Indication: PRODUCT USED FOR UNKNOWN INDICATION
  12. METHOTREXATE [Concomitant]
     Indication: RHEUMATOID ARTHRITIS
     Dosage: 2.5 MG 6 TABS ONCE A WEEK
  13. OMEPRAZOLE [Concomitant]
     Indication: DYSPEPSIA
  14. IRON [Concomitant]
     Indication: ANAEMIA

REACTIONS (7)
  - RENAL FAILURE [None]
  - ASTHENIA [None]
  - INJECTION SITE PAIN [None]
  - INJECTION SITE MASS [None]
  - BLOOD PRESSURE DECREASED [None]
  - ABSCESS [None]
  - INJECTION SITE HAEMATOMA [None]
